FAERS Safety Report 20688630 (Version 1)
Quarter: 2022Q2

REPORT INFORMATION
  Report Type: Spontaneous
  Country: DE (occurrence: DE)
  Receive Date: 20220408
  Receipt Date: 20220408
  Transmission Date: 20220721
  Serious: Yes (Death, Hospitalization, Other)
  Sender: FDA-Public Use
  Company Number: DE-BoehringerIngelheim-2022-BI-164008

PATIENT
  Age: 69 Year
  Sex: Female

DRUGS (6)
  1. OFEV [Suspect]
     Active Substance: NINTEDANIB
     Indication: Systemic sclerosis pulmonary
     Dates: start: 20210701, end: 20210830
  2. OFEV [Suspect]
     Active Substance: NINTEDANIB
     Dates: start: 20211118
  3. RITUXIMAB [Concomitant]
     Active Substance: RITUXIMAB
     Indication: Product used for unknown indication
     Dosage: 1000 MG ON 16-AUG-2021 AND 30-AUG-2021
     Dates: start: 20210816
  4. RITUXIMAB [Concomitant]
     Active Substance: RITUXIMAB
     Route: 065
     Dates: start: 20210830
  5. CYCLOPHOSPHAMIDE [Concomitant]
     Active Substance: CYCLOPHOSPHAMIDE
     Indication: Product used for unknown indication
     Dosage: CYCLOPHOSPHAMID ACCORDING TO AUSTIN-SCHEME, START -MAY-2021 WITH 900 MG ABS., CUMULATIVE 7800 MG, 3
     Dates: start: 202105
  6. PREDNISOLONE [Concomitant]
     Active Substance: PREDNISOLONE
     Indication: Product used for unknown indication
     Dosage: PREDNISOLONPULSIS UP TO 25 MG

REACTIONS (5)
  - Pneumonia [Fatal]
  - Gastroenteritis clostridial [Fatal]
  - Hepatic cirrhosis [Unknown]
  - Diarrhoea [Unknown]
  - Varices oesophageal [Unknown]

NARRATIVE: CASE EVENT DATE: 20210801
